FAERS Safety Report 5882024-0 (Version None)
Quarter: 2008Q3

REPORT INFORMATION
  Report Type: 
  Country: None (occurrence: None)
  Receive Date: 20080912
  Receipt Date: 20080717
  Transmission Date: 20090109
  Serious: No
  Sender: FDA-Public Use
  Company Number: US-ABBOTT-08P-163-0465057-00

PATIENT
  Sex: Female
  Weight: 77.18 kg

DRUGS (5)
  1. HUMIRA [Suspect]
     Indication: RHEUMATOID ARTHRITIS
     Route: 058
     Dates: start: 20070101
  2. HUMIRA [Suspect]
     Dates: end: 20080613
  3. LISINOPRIL [Concomitant]
     Indication: HYPERTENSION
     Route: 048
  4. DYAZIDE [Concomitant]
     Indication: HYPERTENSION
     Dosage: 37.5 /25
     Route: 048
  5. PREDNISONE TAB [Concomitant]
     Indication: INFLAMMATION
     Dosage: ONE PILL FOR FIVE DAYS, ON TAPERED DOSE
     Route: 048

REACTIONS (4)
  - DRUG INEFFECTIVE [None]
  - PAIN [None]
  - STOMATITIS [None]
  - WEIGHT DECREASED [None]
